FAERS Safety Report 26021030 (Version 1)
Quarter: 2025Q4

REPORT INFORMATION
  Report Type: Spontaneous
  Country: EU (occurrence: EU)
  Receive Date: 20251110
  Receipt Date: 20251110
  Transmission Date: 20260118
  Serious: Yes (Hospitalization)
  Sender: REGENERON
  Company Number: None

PATIENT
  Age: 65 Year
  Sex: Female

DRUGS (6)
  1. EYLEA HD [Suspect]
     Active Substance: AFLIBERCEPT
     Indication: Neovascular age-related macular degeneration
     Dosage: 8 MG SINGLE INJECTION 3 TIMES EVERY 8 WEEKS, SOLUTION FOR INJECTION, 114.3 MG/ML
     Route: 031
     Dates: start: 20250522, end: 20250919
  2. EYLEA HD [Suspect]
     Active Substance: AFLIBERCEPT
     Dosage: 8 MG SINGLE INJECTION 3 TIMES EVERY 8 WEEKS, SOLUTION FOR INJECTION, 114.3 MG/ML
     Route: 031
     Dates: start: 20250522, end: 20250919
  3. FLUTICASONE PROPIONATE\SALMETEROL XINAFOATE [Concomitant]
     Active Substance: FLUTICASONE PROPIONATE\SALMETEROL XINAFOATE
     Indication: Product used for unknown indication
     Dosage: UNK
  4. PERINDOPRIL/AMLODIPIN KRKA [Concomitant]
     Indication: Hypertension
     Dosage: 1 TABL X 1
  5. INSULIN ASPART [Concomitant]
     Active Substance: INSULIN ASPART
     Indication: Product used for unknown indication
  6. FIASP [Concomitant]
     Active Substance: INSULIN ASPART
     Indication: Product used for unknown indication
     Dosage: UNK

REACTIONS (4)
  - Visual acuity reduced [Not Recovered/Not Resolved]
  - Non-infectious endophthalmitis [Recovered/Resolved]
  - Vitritis [Recovered/Resolved]
  - Iritis [Recovered/Resolved]

NARRATIVE: CASE EVENT DATE: 20250923
